FAERS Safety Report 12781754 (Version 2)
Quarter: 2016Q4

REPORT INFORMATION
  Report Type: Report from Study
  Country: CA (occurrence: CA)
  Receive Date: 20160926
  Receipt Date: 20161004
  Transmission Date: 20170207
  Serious: Yes (Hospitalization)
  Sender: FDA-Public Use
  Company Number: CA-ACTELION-A-US2016-142599

PATIENT
  Age: 52 Year
  Sex: Female

DRUGS (12)
  1. PREDNISONE. [Concomitant]
     Active Substance: PREDNISONE
  2. KCL [Concomitant]
     Active Substance: POTASSIUM CHLORIDE
  3. CALCIUM [Concomitant]
     Active Substance: CALCIUM
  4. UPTRAVI [Suspect]
     Active Substance: SELEXIPAG
     Dosage: 1400 UNK, UNK
     Route: 048
  5. ALDACTONE [Concomitant]
     Active Substance: SPIRONOLACTONE
  6. UPTRAVI [Suspect]
     Active Substance: SELEXIPAG
     Indication: PULMONARY ARTERIAL HYPERTENSION
     Dosage: 1200 MCG, BID
     Route: 048
     Dates: start: 20160801
  7. LASIX [Concomitant]
     Active Substance: FUROSEMIDE
  8. MG [Concomitant]
     Active Substance: MAGNESIUM
  9. VITAMIN D [Concomitant]
     Active Substance: CHOLECALCIFEROL
  10. PARIET [Concomitant]
     Active Substance: RABEPRAZOLE SODIUM
  11. REVATIO [Concomitant]
     Active Substance: SILDENAFIL CITRATE
  12. CELLCEPT [Concomitant]
     Active Substance: MYCOPHENOLATE MOFETIL\MYCOPHENOLATE MOFETIL HYDROCHLORIDE

REACTIONS (2)
  - Pain in jaw [Not Recovered/Not Resolved]
  - Pneumonia [Not Recovered/Not Resolved]

NARRATIVE: CASE EVENT DATE: 20160922
